FAERS Safety Report 15837971 (Version 1)
Quarter: 2019Q1

REPORT INFORMATION
  Report Type: Spontaneous
  Country: MT (occurrence: MT)
  Receive Date: 20190117
  Receipt Date: 20190117
  Transmission Date: 20190417
  Serious: Yes (Hospitalization, Other)
  Sender: FDA-Public Use
  Company Number: MT-ALEMBIC PHARMACUETICALS LIMITED-2019SCAL000005

PATIENT

DRUGS (1)
  1. QUETIAPINE FUMARATE. [Suspect]
     Active Substance: QUETIAPINE FUMARATE
     Indication: DEMENTIA WITH LEWY BODIES
     Dosage: UNK

REACTIONS (7)
  - Malignant hypertension [Recovered/Resolved]
  - Neuroleptic malignant syndrome [Recovered/Resolved]
  - Communication disorder [Recovered/Resolved]
  - Musculoskeletal stiffness [Recovered/Resolved]
  - Product use in unapproved indication [Unknown]
  - Pyrexia [Recovered/Resolved]
  - Haemoglobinuria [Recovered/Resolved]
